FAERS Safety Report 16896569 (Version 1)
Quarter: 2019Q4

REPORT INFORMATION
  Report Type: Report from Study
  Country: AU (occurrence: AU)
  Receive Date: 20191008
  Receipt Date: 20191008
  Transmission Date: 20200122
  Serious: Yes (Death, Hospitalization)
  Sender: FDA-Public Use
  Company Number: AU-REGENERON PHARMACEUTICALS, INC.-2018-33722

PATIENT

DRUGS (2)
  1. EYLEA [Suspect]
     Active Substance: AFLIBERCEPT
     Dosage: INJECTIONS TO BOTH EYES EVERY 10 WEEKS
     Route: 031
     Dates: start: 2018, end: 201904
  2. EYLEA [Suspect]
     Active Substance: AFLIBERCEPT
     Indication: NEOVASCULAR AGE-RELATED MACULAR DEGENERATION
     Dosage: UNK (OD)
     Route: 031
     Dates: start: 20151101

REACTIONS (8)
  - Cerebrovascular accident [Recovering/Resolving]
  - Conjunctivitis [Unknown]
  - Cardiac disorder [Fatal]
  - Product dose omission [Unknown]
  - Dehydration [Unknown]
  - Fall [Unknown]
  - Infection [Unknown]
  - Eye disorder [Unknown]

NARRATIVE: CASE EVENT DATE: 20180627
